FAERS Safety Report 8014571-X (Version None)
Quarter: 2011Q4

REPORT INFORMATION
  Report Type: 
  Country: None (occurrence: None)
  Receive Date: 20111229
  Receipt Date: 20111227
  Transmission Date: 20120403
  Serious: No
  Sender: FDA-Public Use
  Company Number: US-BAYER-2011-124185

PATIENT
  Age: 54 Year
  Sex: Female

DRUGS (2)
  1. FINACEA [Suspect]
     Indication: ACNE
     Dosage: UNK
     Dates: start: 20111111
  2. FINACEA [Suspect]
     Indication: ROSACEA

REACTIONS (1)
  - HYPERTRICHOSIS [None]
